FAERS Safety Report 4678418-1 (Version None)
Quarter: 2005Q2

REPORT INFORMATION
  Report Type: 
  Country: None (occurrence: None)
  Receive Date: 20050527
  Receipt Date: 20050516
  Transmission Date: 20051028
  Serious: Yes (Other)
  Sender: FDA-Public Use
  Company Number: 2005042044

PATIENT
  Age: 71 Year
  Sex: Male
  Weight: 95.2554 kg

DRUGS (7)
  1. CELEBREX [Suspect]
     Indication: BACK PAIN
     Dosage: ( 200 MG,), ORAL
     Route: 048
     Dates: start: 20000101
  2. NAPROSYN [Suspect]
     Indication: ILL-DEFINED DISORDER
     Dosage: ORAL
     Route: 048
  3. NEXIUM [Concomitant]
  4. ZOCOR [Concomitant]
  5. ALTACE [Concomitant]
  6. CALCIUM (CALCIUM) [Concomitant]
  7. ASPIRIN [Concomitant]

REACTIONS (9)
  - ABDOMINAL PAIN UPPER [None]
  - ASTHENIA [None]
  - BASAL CELL CARCINOMA [None]
  - EAR PAIN [None]
  - GALLBLADDER DISORDER [None]
  - GASTROINTESTINAL HAEMORRHAGE [None]
  - PANCREATIC DISORDER [None]
  - POST PROCEDURAL COMPLICATION [None]
  - SCAB [None]
